FAERS Safety Report 25731486 (Version 1)
Quarter: 2025Q3

REPORT INFORMATION
  Report Type: Spontaneous
  Country: US (occurrence: None)
  Receive Date: 20250827
  Receipt Date: 20250827
  Transmission Date: 20251020
  Serious: Yes (Hospitalization)
  Sender: FDA-CTU
  Company Number: None

PATIENT
  Sex: Female

DRUGS (11)
  1. CAPECITABINE [Suspect]
     Active Substance: CAPECITABINE
     Indication: Rectal cancer
     Route: 048
     Dates: start: 20250325
  2. OXALIPLATIN [Suspect]
     Active Substance: OXALIPLATIN
  3. ATORVASTATIN TAB 10MG [Concomitant]
  4. GLYCOLAX POW 3350 NF [Concomitant]
  5. LIDO/PRILOCN CRE 2.5-2.5% [Concomitant]
  6. MULTIVITAMIN TAB ADULTS [Concomitant]
  7. ONDANSETRON [Concomitant]
     Active Substance: ONDANSETRON
  8. OXALIPLATIN INJ 50/10ML [Concomitant]
  9. SILVADENE CRE1% [Concomitant]
  10. UREA POW [Concomitant]
  11. XELODA [Concomitant]
     Active Substance: CAPECITABINE

REACTIONS (2)
  - Diarrhoea [None]
  - Dyspnoea [None]
